FAERS Safety Report 19507934 (Version 1)
Quarter: 2021Q3

REPORT INFORMATION
  Report Type: Spontaneous
  Country: CN (occurrence: CN)
  Receive Date: 20210708
  Receipt Date: 20210708
  Transmission Date: 20211014
  Serious: Yes (Hospitalization)
  Sender: FDA-Public Use
  Company Number: CN-PFIZER INC-2021808065

PATIENT
  Age: 37 Year
  Sex: Male
  Weight: 99 kg

DRUGS (2)
  1. CYTOSAR [Suspect]
     Active Substance: CYTARABINE
     Indication: SYMPTOMATIC TREATMENT
     Dosage: 4500 MG, 2X/DAY
     Route: 041
     Dates: start: 20210518, end: 20210519
  2. METHOTREXATE. [Suspect]
     Active Substance: METHOTREXATE
     Indication: SYMPTOMATIC TREATMENT
     Dosage: 1.6 G, 1X/DAY
     Route: 041
     Dates: start: 20210517, end: 20210517

REACTIONS (3)
  - Myelosuppression [Recovered/Resolved]
  - Off label use [Unknown]
  - Pyrexia [Recovered/Resolved]

NARRATIVE: CASE EVENT DATE: 20210517
